FAERS Safety Report 8906913 (Version 1)
Quarter: 2012Q4

REPORT INFORMATION
  Report Type: 
  Country: US (occurrence: US)
  Receive Date: 20121113
  Receipt Date: 20121113
  Transmission Date: 20130627
  Serious: No
  Sender: FDA-Public Use
  Company Number: US-AMGEN-USASP2012010946

PATIENT
  Age: 68 Year
  Sex: Female
  Weight: 73.02 kg

DRUGS (8)
  1. ENBREL [Suspect]
     Indication: PRODUCT USED FOR UNKNOWN INDICATION
     Dosage: 50 mg, qwk
     Route: 058
  2. METHOTREXATE [Concomitant]
  3. TRAZODONE [Concomitant]
     Dosage: 50 mg, UNK
  4. LISINOPRIL [Concomitant]
     Dosage: 2.5 mg, UNK
  5. VITAMIN B 12 [Concomitant]
  6. FLEXERIL                           /00428402/ [Concomitant]
     Dosage: 5 mg, UNK
  7. HYDROCODONE [Concomitant]
  8. METHYLPRED [Concomitant]
     Dosage: 8 mg, UNK

REACTIONS (1)
  - Influenza like illness [Unknown]
